FAERS Safety Report 21603467 (Version 1)
Quarter: 2022Q4

REPORT INFORMATION
  Report Type: Spontaneous
  Country: CN (occurrence: CN)
  Receive Date: 20221116
  Receipt Date: 20221116
  Transmission Date: 20230113
  Serious: Yes (Hospitalization, Other)
  Sender: FDA-Public Use
  Company Number: CN-GLAXOSMITHKLINE-CN2022APC166340

PATIENT

DRUGS (1)
  1. LAMOTRIGINE [Suspect]
     Active Substance: LAMOTRIGINE
     Indication: Mood swings
     Dosage: 25 MG, BID
     Route: 048
     Dates: start: 20220920, end: 20221008

REACTIONS (10)
  - Hyperpyrexia [Recovering/Resolving]
  - Rash [Recovering/Resolving]
  - Lymphadenopathy [Recovering/Resolving]
  - Hepatic function abnormal [Recovering/Resolving]
  - Macule [Recovering/Resolving]
  - Pharyngeal erythema [Recovering/Resolving]
  - Pain [Recovering/Resolving]
  - Drug hypersensitivity [Recovering/Resolving]
  - Off label use [Unknown]
  - Product use issue [Unknown]

NARRATIVE: CASE EVENT DATE: 20221008
